FAERS Safety Report 8401041-X (Version None)
Quarter: 2012Q2

REPORT INFORMATION
  Report Type: 
  Country: None (occurrence: None)
  Receive Date: 20120525
  Receipt Date: 20120518
  Transmission Date: 20120825
  Serious: Yes (Other)
  Sender: FDA-Public Use
  Company Number: 1204-191

PATIENT
  Age: 88 Year
  Sex: Male
  Weight: 79.3795 kg

DRUGS (1)
  1. EYLEA [Suspect]
     Dates: start: 20120320

REACTIONS (4)
  - CORNEAL ABRASION [None]
  - KERATITIS [None]
  - EYE IRRITATION [None]
  - BLINDNESS [None]
